FAERS Safety Report 5599636-4 (Version None)
Quarter: 2008Q1

REPORT INFORMATION
  Report Type: 
  Country: None (occurrence: None)
  Receive Date: 20080123
  Receipt Date: 20080116
  Transmission Date: 20080703
  Serious: Yes (Hospitalization)
  Sender: FDA-Public Use
  Company Number: GB-JNJFOC-20080103775

PATIENT
  Age: 54 Year
  Sex: Female

DRUGS (6)
  1. REMICADE [Suspect]
     Indication: RHEUMATOID ARTHRITIS
     Route: 042
  2. METHOTREXATE [Concomitant]
  3. FOLIC ACID [Concomitant]
  4. STEROID [Concomitant]
  5. ATENOLOL [Concomitant]
  6. LEVOTHYROXINE SODIUM [Concomitant]

REACTIONS (3)
  - DYSPNOEA [None]
  - EPISTAXIS [None]
  - FLUSHING [None]
